FAERS Safety Report 5048942-0 (Version None)
Quarter: 2006Q2

REPORT INFORMATION
  Report Type: 
  Country: None (occurrence: None)
  Receive Date: 20060601
  Receipt Date: 20060302
  Transmission Date: 20061013
  Serious: No
  Sender: FDA-Public Use
  Company Number: US200603001105

PATIENT
  Age: 30 Year
  Sex: Male

DRUGS (1)
  1. CYMBALTA [Suspect]
     Indication: DRUG USE FOR UNKNOWN INDICATION
     Dosage: 60 MG
     Dates: start: 20060201

REACTIONS (1)
  - URETHRAL DISCHARGE [None]
